FAERS Safety Report 8533982-7 (Version None)
Quarter: 2012Q3

REPORT INFORMATION
  Report Type: 
  Country: None (occurrence: None)
  Receive Date: 20120724
  Receipt Date: 20120716
  Transmission Date: 20120928
  Serious: Yes (Hospitalization)
  Sender: FDA-Public Use
  Company Number: US-ROCHE-1088642

PATIENT
  Sex: Female

DRUGS (17)
  1. AVASTIN [Suspect]
     Route: 042
     Dates: start: 20111227
  2. OXYCONTIN [Suspect]
     Indication: PRODUCT USED FOR UNKNOWN INDICATION
  3. HYDROCODONE [Concomitant]
  4. LORAZEPAM [Concomitant]
  5. MEGESTROL ACETATE [Concomitant]
  6. LACTULOSE [Concomitant]
  7. OXYCODONE HCL [Concomitant]
  8. AVASTIN [Suspect]
     Indication: RECTAL CANCER
     Route: 042
     Dates: start: 20111213
  9. XANAX [Suspect]
     Indication: PRODUCT USED FOR UNKNOWN INDICATION
  10. PAROXETINE [Concomitant]
  11. DARBEPOETIN ALFA [Concomitant]
  12. POTASSIUM CHLORIDE [Concomitant]
  13. ONDANSETRON [Concomitant]
  14. DIFLUCAN [Concomitant]
  15. PROMETHAZINE [Concomitant]
  16. OXALIPLATIN [Suspect]
     Indication: RECTAL CANCER
  17. ZOLPIDEM [Suspect]
     Indication: PRODUCT USED FOR UNKNOWN INDICATION
     Dosage: DRUG REPORTED AS XOLPIDEM

REACTIONS (2)
  - FIBROSIS [None]
  - DISEASE PROGRESSION [None]
